FAERS Safety Report 18790984 (Version 1)
Quarter: 2021Q1

REPORT INFORMATION
  Report Type: Spontaneous
  Country: US (occurrence: US)
  Receive Date: 20210126
  Receipt Date: 20210126
  Transmission Date: 20210419
  Serious: Yes (Death, Hospitalization)
  Sender: FDA-Public Use
  Company Number: US-ELI_LILLY_AND_COMPANY-US202101008956

PATIENT
  Age: 83 Year
  Sex: Female

DRUGS (2)
  1. LACTULOSE. [Concomitant]
     Active Substance: LACTULOSE
     Indication: CONSTIPATION
     Dosage: UNK, UNKNOWN
     Route: 065
  2. BAMLANIVIMAB 700MG [Suspect]
     Active Substance: BAMLANIVIMAB
     Indication: COVID-19
     Dosage: 700 MG, SINGLE
     Route: 042
     Dates: start: 20201222, end: 20201222

REACTIONS (8)
  - Pneumonia [Unknown]
  - Diarrhoea [Unknown]
  - Septic shock [Unknown]
  - Cardio-respiratory arrest [Fatal]
  - Hypophagia [Recovering/Resolving]
  - Dyspnoea [Unknown]
  - Atrial fibrillation [Fatal]
  - Fatigue [Unknown]

NARRATIVE: CASE EVENT DATE: 20201230
